FAERS Safety Report 6060745-7 (Version None)
Quarter: 2009Q1

REPORT INFORMATION
  Report Type: 
  Country: None (occurrence: None)
  Receive Date: 20090202
  Receipt Date: 20090121
  Transmission Date: 20090719
  Serious: Yes (Death, Other)
  Sender: FDA-Public Use
  Company Number: DE-PFIZER INC-2009155652

PATIENT

DRUGS (5)
  1. LYRICA [Suspect]
     Indication: NEURALGIA
     Dosage: UNK MG, UNK
     Route: 048
     Dates: start: 20090109, end: 20090111
  2. DURAGESIC-100 [Concomitant]
     Route: 062
  3. REMERGIL [Concomitant]
     Indication: DEPRESSION
     Dosage: UNK
     Route: 048
     Dates: start: 20090106
  4. OXYGESIC [Concomitant]
     Indication: PAIN
     Dosage: UNK
     Route: 048
     Dates: start: 20081201
  5. NOVALGIN [Concomitant]
     Dosage: 20 GTT, 4X/DAY
     Dates: start: 20081201

REACTIONS (3)
  - CONVULSION [None]
  - DEATH [None]
  - TREMOR [None]
